FAERS Safety Report 7590292-2 (Version None)
Quarter: 2011Q3

REPORT INFORMATION
  Report Type: 
  Country: None (occurrence: None)
  Receive Date: 20110705
  Receipt Date: 20080816
  Transmission Date: 20111222
  Serious: Yes (Hospitalization, Other)
  Sender: FDA-Public Use
  Company Number: US-BAYER-200831361NA

PATIENT
  Age: 63 Year
  Sex: Male
  Weight: 111 kg

DRUGS (23)
  1. LABETALOL HCL [Concomitant]
     Dosage: 200 MG, BID
     Route: 048
  2. ATIVAN [Concomitant]
     Dosage: 2 MG
     Route: 048
  3. ZITHROMAX [Concomitant]
     Dosage: 250 MG
  4. LASIX [Concomitant]
     Dosage: UNK
     Dates: start: 20041118
  5. TRASYLOL [Suspect]
     Dosage: 100 CC LOADING DOSE
     Route: 042
     Dates: start: 20041118, end: 20041118
  6. ALLOPURINOL [Concomitant]
     Dosage: 150 MG, BID
     Route: 048
  7. ACETYLSALICYLIC ACID SRT [Concomitant]
     Dosage: 81 MG, QD
     Route: 048
  8. CLONIDINE [Concomitant]
     Dosage: 0.2 MG, BID
     Route: 048
  9. CHLOROTHIAZIDE [Concomitant]
     Dosage: 250 G
     Route: 042
  10. LIPITOR [Concomitant]
     Dosage: 10 MG, QD
     Route: 048
  11. HUMULIN 70/30 [Concomitant]
     Dosage: 40 U, BID
     Route: 058
  12. CONTRAST MEDIA [Concomitant]
     Indication: CATHETERISATION CARDIAC
     Dosage: UNK
     Dates: start: 20041116
  13. HYDROCHLOROTHIAZIDE [Concomitant]
     Dosage: 25 MG, QD
     Route: 048
  14. PAPAVERINE [Concomitant]
     Dosage: UNK
     Dates: start: 20041118
  15. CORLOPAM [Concomitant]
     Dosage: UNK
     Dates: start: 20041118
  16. MANNITOL [Concomitant]
     Dosage: UNK
     Dates: start: 20041118
  17. ANCEF [Concomitant]
     Dosage: UNK
     Dates: start: 20041118
  18. METOPROLOL TARTRATE [Concomitant]
     Dosage: 50 MG, BID
     Route: 048
  19. TRASYLOL [Suspect]
     Indication: CORONARY ARTERY BYPASS
     Dosage: 1 ML, ONCE
     Route: 042
     Dates: start: 20041118, end: 20041118
  20. BUMEX [Concomitant]
     Dosage: 2 MG, BID
     Route: 048
  21. PROTONIX [Concomitant]
     Dosage: 40 MG, QD
     Route: 048
  22. HEPARIN [Concomitant]
     Dosage: 3000 U, BOLUS
     Route: 042
  23. HEPARIN [Concomitant]
     Dosage: 1500 CC/HOUR
     Route: 042

REACTIONS (2)
  - RENAL FAILURE [None]
  - INJURY [None]
